FAERS Safety Report 4492861-5 (Version None)
Quarter: 2004Q4

REPORT INFORMATION
  Report Type: 
  Country: None (occurrence: None)
  Receive Date: 20041102
  Receipt Date: 20041102
  Transmission Date: 20050328
  Serious: No
  Sender: FDA-Public Use
  Company Number: None

PATIENT
  Age: 66 Year
  Sex: Female
  Weight: 78.0187 kg

DRUGS (2)
  1. MIDAZOLAM 1 MG/ML [Suspect]
     Indication: SEDATIVE THERAPY
     Dosage: 4 MG ONCE IV
     Route: 042
     Dates: start: 20040703, end: 20040703
  2. MIDAZOLAM 1 MG/ML [Suspect]
     Indication: SEDATIVE THERAPY
     Dosage: 1 MG/HR ONCE IV
     Route: 042
     Dates: start: 20030703, end: 20040703

REACTIONS (3)
  - HAEMODIALYSIS [None]
  - HYPOTENSION [None]
  - LOSS OF CONSCIOUSNESS [None]
